FAERS Safety Report 9416835 (Version 1)
Quarter: 2013Q3

REPORT INFORMATION
  Report Type: Spontaneous
  Country: US (occurrence: US)
  Receive Date: 20130724
  Receipt Date: 20130724
  Transmission Date: 20140515
  Serious: No
  Sender: FDA-Public Use
  Company Number: US-PFIZER INC-2013213049

PATIENT
  Age: 90 Year
  Sex: Female
  Weight: 63.49 kg

DRUGS (4)
  1. ADVIL [Suspect]
     Indication: PAIN
     Dosage: UNK,TWO TIMES A DAY
     Dates: start: 201307
  2. HYDROCODONE [Suspect]
     Indication: PAIN
     Dosage: UNK
  3. CALCIUM [Concomitant]
     Dosage: UNK
  4. XANAX [Concomitant]
     Dosage: UNK

REACTIONS (3)
  - Restless legs syndrome [Unknown]
  - Pruritus [Unknown]
  - Rash [Unknown]
